FAERS Safety Report 9364015 (Version 1)
Quarter: 2013Q2

REPORT INFORMATION
  Report Type: Report from Study
  Country: DE (occurrence: DE)
  Receive Date: 20130624
  Receipt Date: 20130624
  Transmission Date: 20140414
  Serious: Yes (Hospitalization)
  Sender: FDA-Public Use
  Company Number: DE-ROCHE-1131285

PATIENT
  Age: 49 Year
  Sex: Female
  Weight: 55 kg

DRUGS (3)
  1. BEVACIZUMAB [Suspect]
     Indication: OVARIAN CANCER
     Dosage: LAST DOSE PRIOR TO LYMPHOCELE IN SMALL PELVIS:13/SEP/2012, LAST DOSE PRIOR TO LYMPHOCELE ABDOMEN:02/
     Route: 042
     Dates: start: 20120105
  2. CARBOPLATIN [Suspect]
     Indication: OVARIAN CANCER
     Dosage: AUC 5; LAST DOSE PRIOR TO LYMPHOCELE:19/APR/2012
     Route: 042
     Dates: start: 20120105
  3. PACLITAXEL [Suspect]
     Indication: OVARIAN CANCER
     Dosage: LAST DOSE PRIOR TO SAE: 19/APR/2012
     Route: 042
     Dates: start: 20120105

REACTIONS (2)
  - Lymphocele [Recovered/Resolved]
  - Lymphocele [Recovered/Resolved]
